FAERS Safety Report 17285013 (Version 1)
Quarter: 2020Q1

REPORT INFORMATION
  Report Type: Spontaneous
  Country: CZ (occurrence: CZ)
  Receive Date: 20200117
  Receipt Date: 20200117
  Transmission Date: 20200409
  Serious: Yes (Other)
  Sender: FDA-Public Use
  Company Number: CZ-MYLANLABS-2020M1004630

PATIENT
  Sex: Female

DRUGS (5)
  1. CAPECITABINE. [Suspect]
     Active Substance: CAPECITABINE
     Indication: PHAEOCHROMOCYTOMA
     Dosage: UNK
  2. SUNITINIB [Concomitant]
     Active Substance: SUNITINIB
     Dosage: 25 MILLIGRAM(25 MG)
  3. SUNITINIB [Concomitant]
     Active Substance: SUNITINIB
     Dosage: 37 MILLIGRAM(37 MG ON DAYS 1-28 AND WITH A TWO-WEEK PAUSE)
  4. LANREOTIDE [Concomitant]
     Active Substance: LANREOTIDE
     Indication: PHAEOCHROMOCYTOMA
     Dosage: 90 MILLIGRAM(90 MG AT 28-DAY INTERVALS)
  5. SUNITINIB [Concomitant]
     Active Substance: SUNITINIB
     Indication: PHAEOCHROMOCYTOMA
     Dosage: 25 MILLIGRAM, QD(25 MG, QD 1-14 FOLLOWED BY A WEEKLY PAUSE)

REACTIONS (2)
  - Aspergillus infection [Unknown]
  - Sinusitis [Unknown]
